FAERS Safety Report 22178610 (Version 1)
Quarter: 2023Q2

REPORT INFORMATION
  Report Type: Spontaneous
  Country: US (occurrence: US)
  Receive Date: 20230405
  Receipt Date: 20230405
  Transmission Date: 20230721
  Serious: Yes (Other)
  Sender: FDA-Public Use
  Company Number: US-APIL-2310227US

PATIENT
  Sex: Female
  Weight: 68.038 kg

DRUGS (7)
  1. FLUOROMETHOLONE [Suspect]
     Active Substance: FLUOROMETHOLONE
     Indication: Eye disorder prophylaxis
     Dosage: 1 GTT, QD
     Route: 047
     Dates: start: 2011, end: 20230322
  2. FLUOROMETHOLONE [Suspect]
     Active Substance: FLUOROMETHOLONE
     Indication: Prophylaxis against transplant rejection
  3. AMITRIPTYLINE [Concomitant]
     Active Substance: AMITRIPTYLINE
     Indication: Migraine
  4. DIAZEPAM [Concomitant]
     Active Substance: DIAZEPAM
     Indication: Stress
  5. DIAZEPAM [Concomitant]
     Active Substance: DIAZEPAM
     Indication: Anxiety
  6. ACETAMINOPHEN\BUTALBITAL\CAFFEINE [Concomitant]
     Active Substance: ACETAMINOPHEN\BUTALBITAL\CAFFEINE
     Indication: Pain
  7. DOXYCYCLINE [Concomitant]
     Active Substance: DOXYCYCLINE
     Indication: Infection prophylaxis

REACTIONS (20)
  - Arthropathy [Recovered/Resolved]
  - Arthralgia [Recovered/Resolved]
  - Ocular discomfort [Recovered/Resolved]
  - Corneal irritation [Recovered/Resolved]
  - Hypoaesthesia [Not Recovered/Not Resolved]
  - Inguinal hernia [Recovered/Resolved]
  - Tooth injury [Not Recovered/Not Resolved]
  - Toothache [Not Recovered/Not Resolved]
  - Fall [Recovered/Resolved]
  - Contusion [Recovering/Resolving]
  - Arthralgia [Recovering/Resolving]
  - COVID-19 [Recovered/Resolved]
  - Cough [Recovered/Resolved]
  - Pain in jaw [Not Recovered/Not Resolved]
  - Hypersensitivity [Unknown]
  - Eye pain [Recovered/Resolved]
  - Foreign body sensation in eyes [Recovered/Resolved]
  - Intraocular pressure increased [Recovered/Resolved]
  - Eye irritation [Recovered/Resolved]
  - Product container seal issue [Unknown]

NARRATIVE: CASE EVENT DATE: 20190101
